FAERS Safety Report 5289825-0 (Version None)
Quarter: 2007Q2

REPORT INFORMATION
  Report Type: 
  Country: None (occurrence: None)
  Receive Date: 20070406
  Receipt Date: 20070327
  Transmission Date: 20071010
  Serious: Yes (Hospitalization)
  Sender: FDA-Public Use
  Company Number: FR-SANOFI-SYNTHELABO-A02200700902

PATIENT
  Age: 59 Year
  Sex: Female
  Weight: 46 kg

DRUGS (8)
  1. EFFEXOR [Concomitant]
     Route: 048
  2. NEURONTIN [Concomitant]
     Dosage: UNK
     Route: 048
     Dates: start: 20070208, end: 20070225
  3. NEURONTIN [Concomitant]
     Route: 048
     Dates: start: 20070226
  4. MORPHINE SUL INJ [Concomitant]
     Route: 048
     Dates: start: 20070226
  5. LEXOMIL [Concomitant]
     Route: 048
  6. RIVOTRIL [Concomitant]
     Indication: DRUG USE FOR UNKNOWN INDICATION
     Route: 048
     Dates: start: 20070206, end: 20070225
  7. STILNOX [Suspect]
     Indication: INSOMNIA
     Route: 048
     Dates: start: 20070226, end: 20070226
  8. ACTISKENAN [Concomitant]
     Dosage: UNK
     Route: 048
     Dates: start: 20070226

REACTIONS (3)
  - CONFUSIONAL STATE [None]
  - FALL [None]
  - INJURY [None]
